FAERS Safety Report 18275312 (Version 1)
Quarter: 2020Q3

REPORT INFORMATION
  Report Type: Spontaneous
  Country: US (occurrence: US)
  Receive Date: 20200916
  Receipt Date: 20200916
  Transmission Date: 20201103
  Serious: Yes (Other)
  Sender: FDA-Public Use
  Company Number: US-009507513-2009USA005671

PATIENT
  Age: 44 Year
  Sex: Female

DRUGS (5)
  1. SINGULAIR [Suspect]
     Active Substance: MONTELUKAST SODIUM
     Indication: ASTHMA
     Dosage: UNK
  2. BUPROPION. [Concomitant]
     Active Substance: BUPROPION
  3. DIPHENHYDRAMINE. [Concomitant]
     Active Substance: DIPHENHYDRAMINE
  4. EUTHYROX [Concomitant]
     Active Substance: LEVOTHYROXINE SODIUM
  5. EPINEPHRINE. [Concomitant]
     Active Substance: EPINEPHRINE

REACTIONS (5)
  - Urticaria [Unknown]
  - Pruritus [Unknown]
  - Anaphylactic reaction [Unknown]
  - Food allergy [Unknown]
  - Arthropod bite [Unknown]

NARRATIVE: CASE EVENT DATE: 2019
